FAERS Safety Report 17436131 (Version 2)
Quarter: 2020Q1

REPORT INFORMATION
  Report Type: Spontaneous
  Country: NL (occurrence: DE)
  Receive Date: 20200219
  Receipt Date: 20200313
  Transmission Date: 20200409
  Serious: Yes (Death, Hospitalization, Other)
  Sender: FDA-Public Use
  Company Number: DE-FRESENIUS KABI-FK202001551

PATIENT
  Age: 75 Year
  Sex: Female

DRUGS (7)
  1. NIRAPARIB TOSYLATE MONOHYDRATE [Suspect]
     Active Substance: NIRAPARIB TOSYLATE MONOHYDRATE
     Indication: OVARIAN CANCER
     Dosage: 100 MG
     Route: 065
     Dates: start: 20191212, end: 20200110
  2. SIMVASTATIN. [Concomitant]
     Active Substance: SIMVASTATIN
     Indication: PRODUCT USED FOR UNKNOWN INDICATION
     Dosage: 40 MG
     Route: 065
  3. NIRAPARIB TOSYLATE MONOHYDRATE [Suspect]
     Active Substance: NIRAPARIB TOSYLATE MONOHYDRATE
     Dosage: 300 MG, QD
     Route: 065
  4. BISOPROLOL FUMARATE. [Concomitant]
     Active Substance: BISOPROLOL FUMARATE
     Indication: PRODUCT USED FOR UNKNOWN INDICATION
     Dosage: UNK UNK, QD  (10-25 MG)
     Route: 065
  5. TELMISARTAN. [Concomitant]
     Active Substance: TELMISARTAN
     Indication: PRODUCT USED FOR UNKNOWN INDICATION
     Dosage: 80 MG, QD
     Route: 065
  6. CARBOPLATIN (MANUFACTURER UNKNOWN) [Suspect]
     Active Substance: CARBOPLATIN
     Indication: CHEMOTHERAPY
     Route: 065
  7. SITAGLIPTIN PHOSPHATE [Concomitant]
     Active Substance: SITAGLIPTIN PHOSPHATE
     Indication: PRODUCT USED FOR UNKNOWN INDICATION
     Dosage: UNK
     Route: 065

REACTIONS (13)
  - Haematemesis [Unknown]
  - Platelet count abnormal [Recovered/Resolved]
  - Acute kidney injury [Fatal]
  - Gastrointestinal haemorrhage [Recovered/Resolved]
  - Bone marrow failure [Unknown]
  - Off label use [Unknown]
  - Bone marrow toxicity [Unknown]
  - Pancytopenia [Recovered/Resolved]
  - Haemosiderosis [Unknown]
  - Atypical pneumonia [Unknown]
  - Syncope [Unknown]
  - Respiratory failure [Fatal]
  - Haematochezia [Unknown]
